FAERS Safety Report 16379433 (Version 1)
Quarter: 2019Q2

REPORT INFORMATION
  Report Type: Spontaneous
  Country: DE (occurrence: DE)
  Receive Date: 20190531
  Receipt Date: 20190531
  Transmission Date: 20190711
  Serious: Yes (Other)
  Sender: FDA-Public Use
  Company Number: DE-GUERBET-DE-20190058

PATIENT
  Age: 45 Year
  Sex: Female
  Weight: 63 kg

DRUGS (4)
  1. DOTAREM [Suspect]
     Active Substance: GADOTERATE MEGLUMINE
     Indication: NUCLEAR MAGNETIC RESONANCE IMAGING
     Dosage: 15 ML,?10 TIMES MRI WITH GADOLINIUM (VARIOUS FORMS) BETWEEN 2009 AND 2015
     Route: 042
     Dates: start: 200909, end: 201512
  2. GADOLINIUM [Suspect]
     Active Substance: GADOLINIUM
     Indication: NUCLEAR MAGNETIC RESONANCE IMAGING
     Dosage: 15 ML,?10 MAL MRT MIT GADOLINUM (VERSCHIEDENE FORMEN) IN DER ZEIT VON 2009 BIS 2015
     Route: 042
     Dates: start: 200909, end: 201512
  3. OMNISCAN [Suspect]
     Active Substance: GADODIAMIDE
     Indication: NUCLEAR MAGNETIC RESONANCE IMAGING
     Dosage: 15 ML,?10 MAL MRT MIT GADOLINUM (VERSCHIEDENE FORMEN) IN DER ZEIT VON 2009 BIS 2015
     Route: 042
     Dates: start: 200909, end: 201512
  4. GADOVIST [Suspect]
     Active Substance: GADOBUTROL
     Indication: NUCLEAR MAGNETIC RESONANCE IMAGING
     Dosage: 15 ML,?10 MAL MRT MIT GADOLINUM (VERSCHIEDENE FORMEN) IN DER ZEIT VON 2009 BIS 2015
     Route: 042
     Dates: start: 200909, end: 201512

REACTIONS (10)
  - Nausea [Unknown]
  - Disturbance in attention [Recovering/Resolving]
  - Feeling abnormal [Recovering/Resolving]
  - Tendon pain [Recovering/Resolving]
  - Feeling cold [Recovering/Resolving]
  - Pain [Recovering/Resolving]
  - Asthenia [Recovering/Resolving]
  - Dizziness [Unknown]
  - Myalgia [Recovering/Resolving]
  - Somnolence [Unknown]

NARRATIVE: CASE EVENT DATE: 201602
